FAERS Safety Report 4313676-4 (Version None)
Quarter: 2004Q1

REPORT INFORMATION
  Report Type: 
  Country: None (occurrence: None)
  Receive Date: 20040305
  Receipt Date: 20040303
  Transmission Date: 20041129
  Serious: Yes (Life-Threatening, Hospitalization)
  Sender: FDA-Public Use
  Company Number: US-JNJFOC-20040105789

PATIENT
  Age: 15 Year
  Sex: Female
  Weight: 60 kg

DRUGS (1)
  1. TOPAMAX [Suspect]
     Indication: CONVULSION
     Dosage: 200 MG, 40 IN 1 DAY
     Dates: start: 20040114

REACTIONS (18)
  - ANION GAP INCREASED [None]
  - ASPARTATE AMINOTRANSFERASE INCREASED [None]
  - BLOOD CALCIUM DECREASED [None]
  - BLOOD CREATININE DECREASED [None]
  - BLOOD GLUCOSE INCREASED [None]
  - BLOOD POTASSIUM DECREASED [None]
  - BLOOD UREA INCREASED [None]
  - COMA [None]
  - HYPOTENSION [None]
  - METABOLIC ACIDOSIS [None]
  - MULTI-ORGAN FAILURE [None]
  - PANCREATITIS [None]
  - RESPIRATORY FAILURE [None]
  - SHOCK [None]
  - STATUS EPILEPTICUS [None]
  - STRESS SYMPTOMS [None]
  - SUICIDE ATTEMPT [None]
  - WHITE BLOOD CELL COUNT INCREASED [None]
